FAERS Safety Report 14363952 (Version 4)
Quarter: 2018Q1

REPORT INFORMATION
  Report Type: Report from Study
  Country: US (occurrence: US)
  Receive Date: 20180108
  Receipt Date: 20180321
  Transmission Date: 20180509
  Serious: Yes (Other)
  Sender: FDA-Public Use
  Company Number: US-BAYER-2017-193917

PATIENT
  Age: 51 Year
  Sex: Female

DRUGS (3)
  1. STIVARGA [Suspect]
     Active Substance: REGORAFENIB
     Indication: COLORECTAL CANCER METASTATIC
     Dosage: 160 MG, DAILY,3 WEEKS ON, 1 WEEK OFF
     Route: 048
     Dates: start: 20171024, end: 20171031
  2. STIVARGA [Suspect]
     Active Substance: REGORAFENIB
     Indication: COLORECTAL CANCER METASTATIC
     Dosage: DAILY DOSE 120 MG,/ 3 WEEKS ON, ONE WEEK OFF
     Route: 048
     Dates: start: 20171107, end: 20171121
  3. STIVARGA [Suspect]
     Active Substance: REGORAFENIB
     Indication: COLORECTAL CANCER METASTATIC
     Dosage: 160 MG, QD,3 WEEKS ON, 1 WEEK OFF
     Route: 048
     Dates: start: 20170925, end: 20171003

REACTIONS (39)
  - Transfusion [None]
  - Chills [Recovered/Resolved]
  - Dizziness [Not Recovered/Not Resolved]
  - Fatigue [Recovered/Resolved]
  - Dysphonia [Recovering/Resolving]
  - Therapeutic response unexpected [None]
  - Upper respiratory tract infection [Recovering/Resolving]
  - Colorectal cancer metastatic [None]
  - Loss of personal independence in daily activities [None]
  - Rhinorrhoea [Recovered/Resolved]
  - Nausea [Recovering/Resolving]
  - Chest X-ray abnormal [None]
  - Dyspnoea exertional [Recovering/Resolving]
  - Dysphonia [Recovering/Resolving]
  - Hypertension [Recovering/Resolving]
  - Influenza [None]
  - Hair growth abnormal [None]
  - Paraesthesia [None]
  - Productive cough [Recovered/Resolved]
  - Hypoaesthesia [None]
  - Headache [Recovered/Resolved]
  - Decreased appetite [Not Recovered/Not Resolved]
  - Diarrhoea [Not Recovered/Not Resolved]
  - Weight decreased [Recovering/Resolving]
  - Epistaxis [Not Recovered/Not Resolved]
  - Hypoaesthesia [None]
  - Paraesthesia [None]
  - Oedema peripheral [Recovered/Resolved]
  - Pain in extremity [Recovered/Resolved]
  - Dysgeusia [Recovering/Resolving]
  - Headache [None]
  - Muscular weakness [Not Recovered/Not Resolved]
  - Renal impairment [Recovering/Resolving]
  - Renal function test abnormal [Recovering/Resolving]
  - Pyrexia [Recovered/Resolved]
  - Limb discomfort [None]
  - Body temperature abnormal [None]
  - Fatigue [Recovering/Resolving]
  - Intentional product misuse [None]

NARRATIVE: CASE EVENT DATE: 2017
